FAERS Safety Report 9260629 (Version 1)
Quarter: 2013Q2

REPORT INFORMATION
  Report Type: Report from Study
  Country: US (occurrence: US)
  Receive Date: 20130429
  Receipt Date: 20130429
  Transmission Date: 20140414
  Serious: Yes (Hospitalization)
  Sender: FDA-Public Use
  Company Number: US-JNJFOC-20130413226

PATIENT
  Age: 62 Year
  Sex: Female
  Weight: 70.31 kg

DRUGS (9)
  1. SIMPONI [Suspect]
     Indication: RHEUMATOID ARTHRITIS
     Route: 058
     Dates: start: 201207, end: 201209
  2. LYRICA [Concomitant]
     Indication: FIBROMYALGIA
     Route: 048
  3. CYMBALTA [Concomitant]
     Indication: PAIN
     Route: 048
  4. CYMBALTA [Concomitant]
     Indication: FIBROMYALGIA
     Route: 048
  5. XANAX [Concomitant]
     Route: 048
  6. OXYBUTYNIN [Concomitant]
     Route: 048
  7. DEXILANT [Concomitant]
     Route: 048
  8. VITAMIN D [Concomitant]
     Route: 048
  9. HYDROCODONE [Concomitant]
     Indication: PAIN
     Dosage: 10-325 MG

REACTIONS (8)
  - Pneumonia [Unknown]
  - Small intestine operation [Recovering/Resolving]
  - Lung abscess [Unknown]
  - Gastrooesophageal reflux disease [Recovering/Resolving]
  - Road traffic accident [Unknown]
  - Rheumatoid arthritis [Not Recovered/Not Resolved]
  - Device malfunction [Unknown]
  - Drug dose omission [Unknown]
